FAERS Safety Report 21125121 (Version 1)
Quarter: 2022Q3

REPORT INFORMATION
  Report Type: Report from Study
  Country: US (occurrence: US)
  Receive Date: 20220725
  Receipt Date: 20220725
  Transmission Date: 20221026
  Serious: Yes (Other)
  Sender: FDA-Public Use
  Company Number: US-JNJFOC-20220733021

PATIENT
  Age: 45 Year
  Sex: Male
  Weight: 99.880 kg

DRUGS (5)
  1. SPRAVATO [Suspect]
     Active Substance: ESKETAMINE
     Indication: Depression
     Dosage: 56 M, 11 TOTAL DOSES.
     Dates: start: 20220125, end: 20220322
  2. SPRAVATO [Suspect]
     Active Substance: ESKETAMINE
     Dosage: 84 MG,10 TOTAL DOSES
     Dates: start: 20220329, end: 20220712
  3. LITHIUM [Concomitant]
     Active Substance: LITHIUM
  4. SEROQUEL [Concomitant]
     Active Substance: QUETIAPINE FUMARATE
  5. ZOLOFT [Concomitant]
     Active Substance: SERTRALINE HYDROCHLORIDE

REACTIONS (4)
  - Suicidal ideation [Unknown]
  - Depression [Unknown]
  - Withdrawal syndrome [Unknown]
  - Product dose omission issue [Unknown]
